FAERS Safety Report 19226677 (Version 2)
Quarter: 2022Q2

REPORT INFORMATION
  Report Type: Spontaneous
  Country: US (occurrence: None)
  Receive Date: 20210506
  Receipt Date: 20220426
  Transmission Date: 20220721
  Serious: No
  Sender: FDA-Public Use
  Company Number: US-ROCHE-2658528

PATIENT
  Sex: Female

DRUGS (19)
  1. ESBRIET [Suspect]
     Active Substance: PIRFENIDONE
     Indication: Idiopathic pulmonary fibrosis
     Dosage: TAKE 2 CAPSULES BY MOUTH IN MORNING, 2 CAPSULES AT LUNCH AND 1 CAPSULE AT DINNER.?TAKE WITH MEALS;
     Route: 048
     Dates: start: 20191024, end: 202109
  2. FEXOFENADINE [Concomitant]
     Active Substance: FEXOFENADINE HYDROCHLORIDE
     Route: 048
  3. LOSARTAN [Concomitant]
     Active Substance: LOSARTAN
     Route: 048
  4. MICROZIDE (UNITED STATES) [Concomitant]
     Route: 048
  5. BENADRYL ALLERGY [Concomitant]
     Active Substance: DIPHENHYDRAMINE HYDROCHLORIDE
     Route: 048
  6. PRILOSEC [Concomitant]
     Active Substance: OMEPRAZOLE MAGNESIUM
     Route: 048
  7. ULTRAM [Concomitant]
     Active Substance: TRAMADOL HYDROCHLORIDE
     Indication: Pain
     Dosage: TAKE 2 TABLETS TWICE A DAY AS NEEDED FOR PAIN
     Route: 048
  8. ZOCOR [Concomitant]
     Active Substance: SIMVASTATIN
     Route: 048
  9. SINGULAIR [Concomitant]
     Active Substance: MONTELUKAST SODIUM
     Dosage: TAKE 1 TABLET BY MOUTH DAILY
     Route: 048
  10. PLENDIL [Concomitant]
     Active Substance: FELODIPINE
     Dosage: TAKE 1 TABLET BY MOUTH 1 TIME A DAY
     Route: 048
  11. FLOVENT HFA [Concomitant]
     Active Substance: FLUTICASONE PROPIONATE
     Dosage: 44 MCG/ACT INHALER, 2 PUFFS AS DIRECTED TWO TIMES PER DAY
  12. FLONASE [Concomitant]
     Active Substance: FLUTICASONE PROPIONATE
     Indication: Sinus operation
     Dosage: 50MCG/ACT NASAL SPRAY, 2 SPRAYS IN EACH NOSTRIL DAILY FOR NASAL DRAINAGE
     Route: 045
  13. PIRFENIDONE [Concomitant]
     Active Substance: PIRFENIDONE
     Dosage: TAKE 5 CAPSULES BY MOUTH ONE TIME PER DAY 2 AT BREAKFAST, 2 AT LUNCH 2 AT DINNER
     Route: 048
  14. KENALOG [Concomitant]
     Active Substance: TRIAMCINOLONE ACETONIDE
     Indication: Pruritus
  15. CELEBREX [Concomitant]
     Active Substance: CELECOXIB
     Indication: Pain
     Dosage: TAKE 1 CAPSULE BY MOUTH 1 DAY AS NEEDED FOR PAIN
     Route: 048
  16. ASTELIN [Concomitant]
     Active Substance: AZELASTINE HYDROCHLORIDE
     Indication: Hypersensitivity
     Dosage: 0.1% NASAL SPRAY. APPLY 2 SPRAYS INTO NOSE 2 TIMES DAILY AS NEEDED FOR ALLERGY
     Route: 045
  17. CLARITIN-D 12 HOUR [Concomitant]
     Active Substance: LORATADINE\PSEUDOEPHEDRINE SULFATE
     Dosage: TAKE BY MOUTH
     Route: 048
  18. CHOLECALCIFEROL [Concomitant]
     Active Substance: CHOLECALCIFEROL
     Route: 048
  19. CALCIUM\VITAMIN D [Concomitant]
     Active Substance: CALCIUM\VITAMIN D
     Dosage: TAKE 2 CAPS BY MOUTH 1 TIME A DAY
     Route: 048

REACTIONS (5)
  - Rash [Unknown]
  - Diarrhoea [Unknown]
  - Dry skin [Unknown]
  - Alopecia [Unknown]
  - Pyrexia [Recovered/Resolved]
